FAERS Safety Report 19426665 (Version 3)
Quarter: 2021Q2

REPORT INFORMATION
  Report Type: Report from Study
  Country: None (occurrence: US)
  Receive Date: 20210617
  Receipt Date: 20210622
  Transmission Date: 20210717
  Serious: No
  Sender: FDA-Public Use
  Company Number: US-ABBVIE-21K-163-3864202-00

PATIENT
  Sex: Male

DRUGS (1)
  1. HUMIRA [Suspect]
     Active Substance: ADALIMUMAB
     Indication: ANKYLOSING SPONDYLITIS
     Route: 058
     Dates: start: 20210414

REACTIONS (8)
  - Joint lock [Unknown]
  - Tension [Unknown]
  - Arthropathy [Unknown]
  - Eye inflammation [Unknown]
  - Animal scratch [Unknown]
  - Joint stiffness [Not Recovered/Not Resolved]
  - Therapeutic response shortened [Unknown]
  - Intraocular pressure increased [Unknown]

NARRATIVE: CASE EVENT DATE: 2021
